FAERS Safety Report 13737987 (Version 1)
Quarter: 2017Q3

REPORT INFORMATION
  Report Type: Spontaneous
  Country: JO (occurrence: JO)
  Receive Date: 20170710
  Receipt Date: 20170710
  Transmission Date: 20171127
  Serious: Yes (Death, Other)
  Sender: FDA-Public Use
  Company Number: JO-AMGEN-JORSP2017103284

PATIENT
  Age: 47 Year
  Sex: Male

DRUGS (4)
  1. ARANESP [Suspect]
     Active Substance: DARBEPOETIN ALFA
     Indication: HAEMODIALYSIS
     Dosage: 30 MUG, QWK
     Route: 058
  2. ATENOLOL. [Concomitant]
     Active Substance: ATENOLOL
     Indication: HYPERTENSION
     Dosage: 50 MG, BID
  3. INSULIN [Concomitant]
     Active Substance: INSULIN NOS
     Indication: DIABETES MELLITUS
     Dosage: UNK UNK, AS NECESSARY
  4. ASPIRIN. [Concomitant]
     Active Substance: ASPIRIN
     Indication: CEREBROVASCULAR ACCIDENT
     Dosage: 100 MG, QD

REACTIONS (2)
  - Myocardial infarction [Fatal]
  - Sepsis [Fatal]
